FAERS Safety Report 4287624-X (Version None)
Quarter: 2004Q1

REPORT INFORMATION
  Report Type: 
  Country: None (occurrence: None)
  Receive Date: 20040209
  Receipt Date: 20030808
  Transmission Date: 20041129
  Serious: No
  Sender: FDA-Public Use
  Company Number: US-GLAXOSMITHKLINE-A0420187A

PATIENT
  Age: 60 Year
  Sex: Female

DRUGS (1)
  1. PAXIL [Suspect]
     Indication: DEPRESSION
     Dosage: 37.5MG PER DAY
     Route: 048
     Dates: end: 20030718

REACTIONS (13)
  - ANOREXIA [None]
  - BACK PAIN [None]
  - CONTUSION [None]
  - COUGH [None]
  - DIZZINESS [None]
  - FALL [None]
  - FATIGUE [None]
  - HYPERHIDROSIS [None]
  - INFLUENZA [None]
  - MUSCLE TWITCHING [None]
  - NAUSEA [None]
  - TREMOR [None]
  - VOMITING [None]
